FAERS Safety Report 5364660-3 (Version None)
Quarter: 2007Q2

REPORT INFORMATION
  Report Type: 
  Country: None (occurrence: None)
  Receive Date: 20070530
  Receipt Date: 20070122
  Transmission Date: 20071010
  Serious: No
  Sender: FDA-Public Use
  Company Number: 2007PV028796

PATIENT
  Age: 57 Year
  Sex: Female

DRUGS (3)
  1. BYETTA [Suspect]
     Indication: DIABETES MELLITUS NON-INSULIN-DEPENDENT
     Dosage: 5 MCG; BID; SC
     Route: 058
     Dates: start: 20061201
  2. LANTUS [Concomitant]
  3. AMARYL [Concomitant]

REACTIONS (9)
  - ABDOMINAL DISTENSION [None]
  - ANOREXIA [None]
  - BLOOD GLUCOSE INCREASED [None]
  - BRONCHITIS [None]
  - DEHYDRATION [None]
  - GASTROOESOPHAGEAL REFLUX DISEASE [None]
  - NEUROPATHY PERIPHERAL [None]
  - SOMNOLENCE [None]
  - WEIGHT DECREASED [None]
